FAERS Safety Report 24244730 (Version 4)
Quarter: 2024Q3

REPORT INFORMATION
  Report Type: Spontaneous
  Country: DE (occurrence: DE)
  Receive Date: 20240823
  Receipt Date: 20240926
  Transmission Date: 20241016
  Serious: Yes (Hospitalization)
  Sender: BAXTER
  Company Number: DE-BAXTER-2024BAX023404

PATIENT
  Age: 43 Year
  Sex: Male

DRUGS (9)
  1. AMINO ACIDS\DEXTROSE\ELECTROLYTES NOS\SOYBEAN OIL [Suspect]
     Active Substance: AMINO ACIDS\DEXTROSE\ELECTROLYTES NOS\SOYBEAN OIL
     Indication: Neoplasm malignant
     Dosage: (THERAPY DATE: OCT-2023)
     Route: 065
     Dates: start: 20240819
  2. AMINO ACIDS\DEXTROSE\ELECTROLYTES NOS\SOYBEAN OIL [Suspect]
     Active Substance: AMINO ACIDS\DEXTROSE\ELECTROLYTES NOS\SOYBEAN OIL
     Indication: Chemotherapy
     Dosage: 2020 ML VIA LYING CATHETER PORT ONCE DAILY IF NECESSARY (THERAPY DATE: AUG-2024)
     Route: 042
  3. AMINO ACIDS\DEXTROSE\ELECTROLYTES NOS\SOYBEAN OIL [Suspect]
     Active Substance: AMINO ACIDS\DEXTROSE\ELECTROLYTES NOS\SOYBEAN OIL
     Indication: Parenteral nutrition
     Dosage: UNK
     Route: 065
     Dates: start: 20240812, end: 20240813
  4. FENTANYL [Concomitant]
     Active Substance: FENTANYL\FENTANYL CITRATE
     Dosage: PATCH 75 MICROGRAMS/HOUR (DOSAGE FORM : TRANSDERMAL PATCH)
     Route: 065
  5. FENTANYL [Concomitant]
     Active Substance: FENTANYL\FENTANYL CITRATE
     Dosage: B.VOL. FENTANYL BUCCAL TABLETS 100 OR 200 MICROGRAMS (AS NECESSARY)
     Route: 002
  6. SILAPO [Concomitant]
     Dosage: 3000 IU 1 DF (DOSAGE TEXT : 1X/WEEK)
     Route: 065
  7. LACTULOSE [Concomitant]
     Active Substance: LACTULOSE
     Dosage: (DOSAGE TEXT :B.BD.) AS NECESSARY
     Route: 065
  8. PANTOPRAZOLE SODIUM [Concomitant]
     Active Substance: PANTOPRAZOLE SODIUM
     Dosage: 40 MG 1 DF (DOSAGE TEXT : 1X IN THE EVENING)
     Route: 065
  9. AMITRIPTYLINE [Concomitant]
     Active Substance: AMITRIPTYLINE
     Dosage: 20 MG 1 DF (DOSAGE TEXT : 1X IN THE EVENING)
     Route: 065

REACTIONS (4)
  - Chills [Recovered/Resolved]
  - Flushing [Recovered/Resolved]
  - Inflammation [Unknown]
  - Product quality issue [Unknown]

NARRATIVE: CASE EVENT DATE: 20240819
